FAERS Safety Report 24917587 (Version 1)
Quarter: 2025Q1

REPORT INFORMATION
  Report Type: Spontaneous
  Country: US (occurrence: None)
  Receive Date: 20250203
  Receipt Date: 20250203
  Transmission Date: 20250409
  Serious: Yes (Other)
  Sender: FDA-CTU
  Company Number: None

PATIENT
  Age: 70 Year
  Sex: Male
  Weight: 86.4 kg

DRUGS (4)
  1. ZEPBOUND [Suspect]
     Active Substance: TIRZEPATIDE
     Indication: Weight decreased
     Route: 058
     Dates: start: 20250128, end: 20250128
  2. TOPROL XL [Concomitant]
     Active Substance: METOPROLOL SUCCINATE
  3. FLECAINIDE [Concomitant]
     Active Substance: FLECAINIDE
  4. ZYRTEC [Concomitant]
     Active Substance: CETIRIZINE HYDROCHLORIDE

REACTIONS (10)
  - Loss of consciousness [None]
  - Seizure [None]
  - Urinary incontinence [None]
  - Eructation [None]
  - Gastrooesophageal reflux disease [None]
  - Diarrhoea [None]
  - Dehydration [None]
  - Asthenia [None]
  - Tremor [None]
  - Blood pressure ambulatory decreased [None]

NARRATIVE: CASE EVENT DATE: 20250131
